FAERS Safety Report 16273623 (Version 1)
Quarter: 2019Q2

REPORT INFORMATION
  Report Type: Spontaneous
  Country: US (occurrence: US)
  Receive Date: 20190506
  Receipt Date: 20190506
  Transmission Date: 20190711
  Serious: Yes (Other)
  Sender: FDA-Public Use
  Company Number: US-CONCORDIA PHARMACEUTICALS INC.-GSH201905-001299

PATIENT
  Age: 60 Year
  Sex: Female

DRUGS (1)
  1. HYDROXYCHLOROQUINE [Suspect]
     Active Substance: HYDROXYCHLOROQUINE
     Indication: RHEUMATOID ARTHRITIS
     Dosage: A DOSE OF 400 MG DAILY FOR 14 YEARS
     Route: 065

REACTIONS (3)
  - Detachment of retinal pigment epithelium [Unknown]
  - Retinal depigmentation [Unknown]
  - Visual field defect [Unknown]
